FAERS Safety Report 22942680 (Version 2)
Quarter: 2025Q4

REPORT INFORMATION
  Report Type: Spontaneous
  Country: EU (occurrence: EU)
  Receive Date: 20230914
  Receipt Date: 20251119
  Transmission Date: 20260117
  Serious: Yes (Hospitalization)
  Sender: AUROBINDO
  Company Number: EU-EMA-DD-20230901-7291047-091349

PATIENT
  Age: 32 Year
  Sex: Female

DRUGS (2)
  1. ACYCLOVIR [Suspect]
     Active Substance: ACYCLOVIR
     Indication: Herpes simplex
     Dosage: UNK
  2. METHYLPREDNISOLONE [Suspect]
     Active Substance: METHYLPREDNISOLONE
     Indication: Multiple sclerosis
     Dosage: 1 GRAM

REACTIONS (6)
  - Confusional state [Recovering/Resolving]
  - Pyrexia [Recovering/Resolving]
  - Disease progression [Recovering/Resolving]
  - Headache [Recovering/Resolving]
  - Herpes simplex [Recovering/Resolving]
  - Computerised tomogram abnormal [Recovering/Resolving]
